FAERS Safety Report 24645604 (Version 2)
Quarter: 2024Q4

REPORT INFORMATION
  Report Type: Spontaneous
  Country: US (occurrence: US)
  Receive Date: 20241121
  Receipt Date: 20241203
  Transmission Date: 20250115
  Serious: Yes (Other)
  Sender: TEVA
  Company Number: US-TEVA-VS-3265538

PATIENT
  Age: 76 Year
  Sex: Female

DRUGS (11)
  1. PREDNISONE [Suspect]
     Active Substance: PREDNISONE
     Indication: Carpal tunnel syndrome
     Route: 065
  2. SELINEXOR [Suspect]
     Active Substance: SELINEXOR
     Indication: Primary amyloidosis
     Route: 065
  3. BORTEZOMIB [Suspect]
     Active Substance: BORTEZOMIB
     Indication: Primary amyloidosis
     Route: 065
  4. CARFILZOMIB [Suspect]
     Active Substance: CARFILZOMIB
     Indication: Primary amyloidosis
     Route: 065
  5. POMALIDOMIDE [Concomitant]
     Active Substance: POMALIDOMIDE
     Indication: Primary amyloidosis
  6. CYCLOPHOSPHAMIDE [Concomitant]
     Active Substance: CYCLOPHOSPHAMIDE
     Indication: Primary amyloidosis
  7. DEXAMETHASONE [Suspect]
     Active Substance: DEXAMETHASONE
     Indication: Primary amyloidosis
     Route: 065
  8. ISATUXIMAB [Concomitant]
     Active Substance: ISATUXIMAB
     Indication: Primary amyloidosis
  9. IXAZOMIB [Concomitant]
     Active Substance: IXAZOMIB
     Indication: Primary amyloidosis
  10. DARATUMUMAB [Suspect]
     Active Substance: DARATUMUMAB
     Indication: Primary amyloidosis
     Route: 065
  11. SECUKINUMAB [Concomitant]
     Active Substance: SECUKINUMAB
     Indication: Carpal tunnel syndrome

REACTIONS (7)
  - Pyrexia [Unknown]
  - Fatigue [Unknown]
  - Neuropathy peripheral [Unknown]
  - Chills [Unknown]
  - Alopecia [Unknown]
  - Nervous system disorder [Unknown]
  - Drug ineffective [Unknown]
